FAERS Safety Report 12512813 (Version 1)
Quarter: 2016Q2

REPORT INFORMATION
  Report Type: Spontaneous
  Country: US (occurrence: None)
  Receive Date: 20160629
  Receipt Date: 20160629
  Transmission Date: 20160815
  Serious: No
  Sender: FDA-Public Use
  Company Number: None

PATIENT
  Age: 67 Year
  Sex: Female
  Weight: 87.54 kg

DRUGS (10)
  1. DOXAZOSIN [Concomitant]
     Active Substance: DOXAZOSIN\DOXAZOSIN MESYLATE
  2. CRANBERRY. [Concomitant]
     Active Substance: CRANBERRY
  3. NITROFURANTOIN MONOHYD MACRO 100MG NORTHSTAR [Suspect]
     Active Substance: NITROFURANTOIN\NITROFURANTOIN MONOHYDRATE
     Indication: CYSTITIS
     Dosage: 14 CAPSULE
     Dates: start: 20160523, end: 20160530
  4. SIMVASTATIN. [Concomitant]
     Active Substance: SIMVASTATIN
  5. CULTURELLE [Concomitant]
     Active Substance: LACTOBACILLUS RHAMNOSUS
  6. MULTIVITAMIN [Concomitant]
     Active Substance: VITAMINS
  7. NAPROXEN. [Concomitant]
     Active Substance: NAPROXEN
  8. LOSARTAN/HCLZ [Concomitant]
  9. MULTIVITAMIN [Concomitant]
     Active Substance: VITAMINS
  10. LEVOTHYROXINE. [Concomitant]
     Active Substance: LEVOTHYROXINE

REACTIONS (4)
  - Rash generalised [None]
  - Throat tightness [None]
  - Dyspnoea [None]
  - Chills [None]

NARRATIVE: CASE EVENT DATE: 20160531
